FAERS Safety Report 8895223 (Version 1)
Quarter: 2012Q4

REPORT INFORMATION
  Report Type: 
  Country: US (occurrence: US)
  Receive Date: 20121107
  Receipt Date: 20121107
  Transmission Date: 20130627
  Serious: No
  Sender: FDA-Public Use
  Company Number: US-AMGEN-USASP2011051132

PATIENT
  Age: 42 Year

DRUGS (1)
  1. ENBREL [Suspect]
     Indication: RHEUMATOID ARTHRITIS
     Dosage: 50 mg, qwk
     Dates: start: 20110812

REACTIONS (5)
  - Influenza like illness [Unknown]
  - Pharyngitis [Unknown]
  - Ear infection [Unknown]
  - Infection [Unknown]
  - Pyrexia [Unknown]
